FAERS Safety Report 6628671-X (Version None)
Quarter: 2010Q1

REPORT INFORMATION
  Report Type: 
  Country: None (occurrence: None)
  Receive Date: 20100311
  Receipt Date: 20100226
  Transmission Date: 20100710
  Serious: Yes (Other)
  Sender: FDA-Public Use
  Company Number: US-PFIZER INC-2010028204

PATIENT
  Sex: Female
  Weight: 63.492 kg

DRUGS (2)
  1. GEODON [Suspect]
     Indication: MANIA
     Route: 048
     Dates: start: 20100215
  2. ZOLOFT [Concomitant]
     Dosage: UNK

REACTIONS (6)
  - HEART RATE IRREGULAR [None]
  - HYPERHIDROSIS [None]
  - MALAISE [None]
  - MENOPAUSAL SYMPTOMS [None]
  - PALPITATIONS [None]
  - PYREXIA [None]
